FAERS Safety Report 4355968-9 (Version None)
Quarter: 2004Q2

REPORT INFORMATION
  Report Type: 
  Country: None (occurrence: None)
  Receive Date: 20040507
  Receipt Date: 20040507
  Transmission Date: 20050107
  Serious: Yes (Other)
  Sender: FDA-Public Use
  Company Number: None

PATIENT
  Age: 32 Year
  Sex: Female

DRUGS (3)
  1. DEXTROAMPHETAMINE 10 MG TAB- BARR [Suspect]
     Indication: NARCOLEPSY
     Dosage: TWO AM , NOON, ONE PM
     Dates: start: 20040326, end: 20040426
  2. FLUOXETINE [Concomitant]
  3. TRAZODONE HCL [Concomitant]

REACTIONS (2)
  - DRUG EFFECT DECREASED [None]
  - PHARMACEUTICAL PRODUCT COMPLAINT [None]
